FAERS Safety Report 21650995 (Version 1)
Quarter: 2022Q4

REPORT INFORMATION
  Report Type: Report from Study
  Country: IT (occurrence: IT)
  Receive Date: 20221128
  Receipt Date: 20221128
  Transmission Date: 20230113
  Serious: Yes (Other)
  Sender: FDA-Public Use
  Company Number: None

PATIENT
  Age: 72 Year
  Sex: Female
  Weight: 82 kg

DRUGS (5)
  1. OXALIPLATIN [Suspect]
     Active Substance: OXALIPLATIN
     Indication: Adenocarcinoma of colon
     Dosage: THE PATIENT WAS ADMINISTERED 177.97 MG OF OXALIPLATIN ON 13/09/2022
     Dates: start: 20220913, end: 20220913
  2. CAPECITABINE [Suspect]
     Active Substance: CAPECITABINE
     Indication: Adenocarcinoma of colon
     Dosage: THE PATIENT INTAKE 2800 MG OF CAPECITABINE PER DAY FOR 14 DAYS
     Dates: start: 20220914, end: 20220927
  3. ENALAPRIL [Concomitant]
     Active Substance: ENALAPRIL
     Indication: Hypertension
  4. LANSOPRAZOLE [Concomitant]
     Active Substance: LANSOPRAZOLE
     Dosage: THE PATIENT INTAKE 30 MG OF LANSOPRAZOLE ONCE A DAY
  5. DEXAMETHASONE [Concomitant]
     Active Substance: DEXAMETHASONE
     Dosage: THE PATIENT INTAKE 4 MG DEXAMETHASONE, 1 TIME DAILY FOR 3 DAYS AFTER OXALIPLATIN INFUSION

REACTIONS (2)
  - Myalgia [Unknown]
  - Haematochezia [Unknown]

NARRATIVE: CASE EVENT DATE: 20220915
